FAERS Safety Report 7632002-6 (Version None)
Quarter: 2011Q3

REPORT INFORMATION
  Report Type: 
  Country: None (occurrence: None)
  Receive Date: 20110725
  Receipt Date: 20100823
  Transmission Date: 20111222
  Serious: Yes (Life-Threatening, Hospitalization, Other)
  Sender: FDA-Public Use
  Company Number: US-BRISTOL-MYERS SQUIBB COMPANY-12401196

PATIENT
  Age: 49 Year
  Sex: Male

DRUGS (8)
  1. TRILEPTAL [Concomitant]
     Route: 048
  2. PLAVIX [Suspect]
     Indication: CORONARY ARTERIAL STENT INSERTION
     Route: 048
     Dates: start: 20020605, end: 20020718
  3. MULTI-VITAMIN [Concomitant]
     Route: 048
  4. ASPIRIN [Suspect]
     Dosage: RESTARTED AT 325 MG DAILY ON AN UNSPECIFIED DATE
  5. ALTACE [Concomitant]
  6. LOPRESSOR [Suspect]
     Route: 048
     Dates: start: 20020605, end: 20020718
  7. ZOLOFT [Concomitant]
     Indication: DEPRESSION
     Route: 048
     Dates: start: 20020501
  8. COUMADIN [Suspect]
     Indication: CORONARY ARTERIAL STENT INSERTION
     Route: 048
     Dates: start: 20020605, end: 20020718

REACTIONS (10)
  - CEREBRAL HAEMORRHAGE [None]
  - SUICIDAL IDEATION [None]
  - MEMORY IMPAIRMENT [None]
  - BLINDNESS TRANSIENT [None]
  - INTERNATIONAL NORMALISED RATIO INCREASED [None]
  - MOUTH HAEMORRHAGE [None]
  - PARALYSIS [None]
  - BIPOLAR I DISORDER [None]
  - HEADACHE [None]
  - NIGHTMARE [None]
